FAERS Safety Report 9804288 (Version 2)
Quarter: 2014Q1

REPORT INFORMATION
  Report Type: Spontaneous
  Country: TN (occurrence: TN)
  Receive Date: 20140108
  Receipt Date: 20140206
  Transmission Date: 20141002
  Serious: Yes (Other)
  Sender: FDA-Public Use
  Company Number: TN-PFIZER INC-2014001321

PATIENT
  Age: 51 Year
  Sex: Male

DRUGS (7)
  1. IDARUBICIN HCL [Suspect]
     Indication: ACUTE MYELOID LEUKAEMIA
     Dosage: 12 MG M2/DAY FOR 3 DAYS
  2. CYTARABINE [Suspect]
     Indication: ACUTE MYELOID LEUKAEMIA
     Dosage: 200 MG M2/DAY FOR 7 DAYS
  3. VANCOMYCIN HCL [Suspect]
     Indication: PYREXIA
  4. CEFTAZIDIME [Suspect]
     Indication: PYREXIA
     Dosage: UNK
  5. CIPROFLOXACIN [Suspect]
     Indication: PYREXIA
     Dosage: UNK
  6. IMIPENEM [Suspect]
     Indication: PYREXIA
     Dosage: UNK
  7. AMIKACIN [Suspect]
     Indication: PYREXIA
     Dosage: UNK

REACTIONS (2)
  - Fungaemia [Recovered/Resolved]
  - Neutropenia [Recovered/Resolved]
